FAERS Safety Report 26101983 (Version 1)
Quarter: 2025Q4

REPORT INFORMATION
  Report Type: Spontaneous
  Country: EU (occurrence: EU)
  Receive Date: 20251128
  Receipt Date: 20251128
  Transmission Date: 20260118
  Serious: Yes (Other)
  Sender: TEVA
  Company Number: EU-TEVA-VS-3397197

PATIENT
  Age: 71 Year
  Sex: Male

DRUGS (1)
  1. EZETIMIBE [Suspect]
     Active Substance: EZETIMIBE
     Indication: Dyslipidaemia
     Route: 048
     Dates: start: 20250408, end: 20251111

REACTIONS (1)
  - Idiopathic pancreatitis [Recovering/Resolving]

NARRATIVE: CASE EVENT DATE: 20250828
